FAERS Safety Report 6738857-1 (Version None)
Quarter: 2010Q2

REPORT INFORMATION
  Report Type: 
  Country: None (occurrence: None)
  Receive Date: 20100520
  Receipt Date: 20100506
  Transmission Date: 20101027
  Serious: Yes (Hospitalization, Other)
  Sender: FDA-Public Use
  Company Number: 1000013897

PATIENT
  Age: 58 Year
  Sex: Female

DRUGS (9)
  1. CITALOPRAM HYDROBROMIDE [Suspect]
     Dosage: 60 MG (60 MG, 1 IN 1 D)
  2. HYDROCHLOROTHIAZIDE [Suspect]
     Dosage: 25 MG (25 MG, 1 IN 1 D)
  3. QUETIAPINE [Concomitant]
  4. CLONAZEPAM [Concomitant]
  5. ACAMPROSATE [Concomitant]
  6. ATENOLOL [Concomitant]
  7. RANITIDINE [Concomitant]
  8. MIRTAZAPINE [Concomitant]
  9. ROSUVASTATIN [Concomitant]

REACTIONS (6)
  - ASTHENIA [None]
  - ELECTROCARDIOGRAM QT PROLONGED [None]
  - HYPERHIDROSIS [None]
  - MALAISE [None]
  - NAUSEA [None]
  - VENTRICULAR FIBRILLATION [None]
